FAERS Safety Report 20245191 (Version 1)
Quarter: 2021Q4

REPORT INFORMATION
  Report Type: Spontaneous
  Country: CA (occurrence: None)
  Receive Date: 20211229
  Receipt Date: 20211229
  Transmission Date: 20220303
  Serious: Yes (Other)
  Sender: FDA-Public Use
  Company Number: CA-PFIZER INC-202101856201

PATIENT
  Age: 76 Year
  Sex: Male

DRUGS (2)
  1. METHOTREXATE [Suspect]
     Active Substance: METHOTREXATE
     Indication: Product used for unknown indication
     Route: 065
  2. INFLECTRA [Suspect]
     Active Substance: INFLIXIMAB-DYYB
     Indication: Psoriatic arthropathy
     Dosage: 3 MG (0, 2, 6 WEEKS, THEN EVERY 8 WEEKS. NOT YET STARTED)
     Route: 042

REACTIONS (5)
  - Type 2 diabetes mellitus [Unknown]
  - Nonalcoholic fatty liver disease [Unknown]
  - Arthralgia [Unknown]
  - Swelling [Unknown]
  - Mobility decreased [Unknown]
